FAERS Safety Report 13771526 (Version 2)
Quarter: 2017Q3

REPORT INFORMATION
  Report Type: Spontaneous
  Country: JP (occurrence: JP)
  Receive Date: 20170720
  Receipt Date: 20170729
  Transmission Date: 20171127
  Serious: Yes (Death, Life-Threatening, Hospitalization, Other)
  Sender: FDA-Public Use
  Company Number: JP-ACCORD-053745

PATIENT
  Age: 73 Year
  Sex: Female

DRUGS (4)
  1. PREGABALIN. [Concomitant]
     Active Substance: PREGABALIN
  2. LOXOPROFEN [Concomitant]
     Active Substance: LOXOPROFEN
  3. REBAMIPIDE [Concomitant]
     Active Substance: REBAMIPIDE
  4. IRINOTECAN [Suspect]
     Active Substance: IRINOTECAN
     Indication: THYMIC CANCER METASTATIC
     Dosage: DAYS 1, 8 AND 15, EVERY 4 WEEKS
     Dates: start: 201405

REACTIONS (1)
  - Pulmonary alveolar haemorrhage [Recovered/Resolved]

NARRATIVE: CASE EVENT DATE: 201407
